FAERS Safety Report 7267438-9 (Version None)
Quarter: 2011Q1

REPORT INFORMATION
  Report Type: 
  Country: None (occurrence: None)
  Receive Date: 20110201
  Receipt Date: 20110124
  Transmission Date: 20110831
  Serious: Yes (Death, Life-Threatening)
  Sender: FDA-Public Use
  Company Number: DE-JNJFOC-20100706756

PATIENT
  Age: 71 Year
  Sex: Male
  Weight: 118 kg

DRUGS (5)
  1. CLOPIDOGREL [Concomitant]
     Indication: ACUTE MYOCARDIAL INFARCTION
  2. HEPARIN [Concomitant]
     Indication: ACUTE MYOCARDIAL INFARCTION
  3. REOPRO [Suspect]
     Indication: ACUTE MYOCARDIAL INFARCTION
     Route: 022
  4. REOPRO [Suspect]
     Dosage: 18:13 TO 06:30
     Route: 042
  5. ACETYLSALICYLIC ACID SRT [Concomitant]
     Indication: ACUTE MYOCARDIAL INFARCTION

REACTIONS (11)
  - PULMONARY EMBOLISM [None]
  - HAEMORRHAGE [None]
  - RENAL FAILURE [None]
  - PNEUMONIA [None]
  - ATRIAL FIBRILLATION [None]
  - CARDIOGENIC SHOCK [None]
  - THROMBOCYTOPENIA [None]
  - VENTRICULAR TACHYCARDIA [None]
  - THROMBOSIS [None]
  - COMPARTMENT SYNDROME [None]
  - RESPIRATORY FAILURE [None]
